FAERS Safety Report 7720274-9 (Version None)
Quarter: 2011Q3

REPORT INFORMATION
  Report Type: 
  Country: None (occurrence: None)
  Receive Date: 20110831
  Receipt Date: 20110826
  Transmission Date: 20111222
  Serious: Yes (Other)
  Sender: FDA-Public Use
  Company Number: US-PFIZER INC-2011199681

PATIENT
  Sex: Male
  Weight: 101.13 kg

DRUGS (4)
  1. LYRICA [Suspect]
     Indication: PAIN IN EXTREMITY
  2. TRAMADOL [Concomitant]
     Indication: BACK PAIN
     Dosage: UNK
  3. LYRICA [Suspect]
     Indication: NERVE INJURY
     Dosage: 100 MG
     Dates: start: 20110721, end: 20110701
  4. LISINOPRIL [Concomitant]
     Indication: HYPERTENSION
     Dosage: 20 MG

REACTIONS (5)
  - HYPERSENSITIVITY [None]
  - FACE OEDEMA [None]
  - PHARYNGEAL OEDEMA [None]
  - PENILE OEDEMA [None]
  - LOCAL SWELLING [None]
